FAERS Safety Report 17898511 (Version 1)
Quarter: 2020Q2

REPORT INFORMATION
  Report Type: Spontaneous
  Country: DE (occurrence: DE)
  Receive Date: 20200615
  Receipt Date: 20200615
  Transmission Date: 20200714
  Serious: Yes (Hospitalization)
  Sender: FDA-Public Use
  Company Number: DE-JNJFOC-20200608142

PATIENT
  Age: 50 Year
  Sex: Female

DRUGS (6)
  1. BUDESONIDE. [Concomitant]
     Active Substance: BUDESONIDE
  2. HYDROCORTISONE. [Concomitant]
     Active Substance: HYDROCORTISONE
  3. DHEA [Concomitant]
     Active Substance: PRASTERONE
  4. ESTRADIOL. [Concomitant]
     Active Substance: ESTRADIOL
  5. MESALAZINE [Concomitant]
     Active Substance: MESALAMINE
  6. STELARA [Suspect]
     Active Substance: USTEKINUMAB
     Indication: CROHN^S DISEASE
     Route: 058

REACTIONS (1)
  - Reversible cerebral vasoconstriction syndrome [Recovered/Resolved]
